FAERS Safety Report 8594348 (Version 7)
Quarter: 2013Q4

REPORT INFORMATION
  Report Type: Spontaneous
  Country: JP (occurrence: JP)
  Receive Date: 20120604
  Receipt Date: 20131217
  Transmission Date: 20140711
  Serious: Yes (Death, Hospitalization, Other)
  Sender: FDA-Public Use
  Company Number: JP-GILEAD-2012-0055803

PATIENT
  Age: 79 Year
  Sex: Female
  Weight: 38 kg

DRUGS (7)
  1. AMBRISENTAN [Suspect]
     Indication: PULMONARY ARTERIAL HYPERTENSION
     Dosage: 2.5MG PER DAY
     Route: 048
     Dates: start: 20120511, end: 20120514
  2. REVATIO [Concomitant]
     Indication: PULMONARY ARTERIAL HYPERTENSION
     Dosage: 20MCG TWICE PER DAY
     Route: 048
     Dates: start: 20120428
  3. BERASUS [Concomitant]
     Indication: PULMONARY ARTERIAL HYPERTENSION
     Dosage: 60MCG TWICE PER DAY
     Route: 048
     Dates: start: 20120505
  4. TAKEPRON [Concomitant]
     Indication: GASTROOESOPHAGEAL REFLUX DISEASE
     Dosage: 15 MG, BID
     Route: 048
  5. RENIVACE [Concomitant]
     Indication: HYPERTENSION
     Dosage: 1.25MG PER DAY
     Route: 048
  6. ARTIST [Concomitant]
     Indication: HYPERTENSION
     Dosage: 1.25MG PER DAY
     Route: 048
  7. EPOPROSTENOL [Concomitant]
     Indication: PULMONARY ARTERIAL HYPERTENSION
     Route: 042

REACTIONS (18)
  - Circulatory collapse [Fatal]
  - Pyrexia [Unknown]
  - Pulmonary hypertension [Unknown]
  - Ileus [Unknown]
  - Infection [Unknown]
  - General physical health deterioration [Unknown]
  - Malaise [Unknown]
  - Hypotension [Unknown]
  - Urinary tract infection [Unknown]
  - Ascites [Unknown]
  - Pleural effusion [Unknown]
  - Left ventricular failure [Unknown]
  - Right ventricular failure [Unknown]
  - Cardiac failure [Unknown]
  - Normochromic normocytic anaemia [Recovering/Resolving]
  - Fluid retention [Unknown]
  - Weight increased [Unknown]
  - Fatigue [Unknown]
